FAERS Safety Report 7651644-5 (Version None)
Quarter: 2011Q3

REPORT INFORMATION
  Report Type: 
  Country: None (occurrence: None)
  Receive Date: 20110802
  Receipt Date: 20110726
  Transmission Date: 20111222
  Serious: Yes (Other)
  Sender: FDA-Public Use
  Company Number: JP-BAXTER-2011BH024605

PATIENT

DRUGS (2)
  1. ANTIHYPERTENSIVES [Suspect]
     Indication: HYPERTENSION
     Route: 048
  2. DIANEAL [Suspect]
     Indication: RENAL FAILURE CHRONIC
     Route: 033

REACTIONS (1)
  - ECZEMA [None]
